FAERS Safety Report 7370789-0 (Version None)
Quarter: 2011Q1

REPORT INFORMATION
  Report Type: 
  Country: None (occurrence: None)
  Receive Date: 20110324
  Receipt Date: 20110316
  Transmission Date: 20110831
  Serious: Yes (Hospitalization)
  Sender: FDA-Public Use
  Company Number: US-BIOGENIDEC-2010BI028323

PATIENT
  Age: 23 Year
  Sex: Male
  Weight: 57 kg

DRUGS (1)
  1. TYSABRI [Suspect]
     Indication: CROHN'S DISEASE
     Route: 042
     Dates: start: 20091230, end: 20100714

REACTIONS (2)
  - COLECTOMY TOTAL [None]
  - CROHN'S DISEASE [None]
